FAERS Safety Report 6902708-2 (Version None)
Quarter: 2010Q3

REPORT INFORMATION
  Report Type: 
  Country: None (occurrence: None)
  Receive Date: 20100803
  Receipt Date: 20080708
  Transmission Date: 20110219
  Serious: No
  Sender: FDA-Public Use
  Company Number: US-PFIZER INC-2008056794

PATIENT
  Sex: Female
  Weight: 71.4 kg

DRUGS (10)
  1. LYRICA [Suspect]
     Indication: HERPES ZOSTER
     Dates: start: 20080707
  2. LIPITOR [Concomitant]
     Indication: BLOOD CHOLESTEROL INCREASED
  3. ZETIA [Concomitant]
  4. PREVACID [Concomitant]
  5. AVANDAMET [Concomitant]
     Indication: DIABETES MELLITUS
  6. NAPROXEN [Concomitant]
  7. VALSARTAN [Concomitant]
     Indication: BLOOD PRESSURE ABNORMAL
  8. DRUG, UNSPECIFIED [Concomitant]
  9. CALCIUM [Concomitant]
  10. SYNTHROID [Concomitant]
     Indication: THYROID DISORDER

REACTIONS (3)
  - BRADYPHRENIA [None]
  - DIZZINESS [None]
  - NAUSEA [None]
